FAERS Safety Report 9460647 (Version 2)
Quarter: 2013Q3

REPORT INFORMATION
  Report Type: Report from Study
  Country: CL (occurrence: CL)
  Receive Date: 20130815
  Receipt Date: 20130916
  Transmission Date: 20140515
  Serious: Yes (Other)
  Sender: FDA-Public Use
  Company Number: PHHY2013CL088044

PATIENT
  Age: 76 Year
  Sex: Female

DRUGS (5)
  1. TAREG D [Suspect]
     Indication: HYPERTENSION
     Dosage: 1 DF (320 MG VALS/ 12,5 MG HYDRO) QD
     Route: 048
  2. FUROSEMIDE [Concomitant]
     Dosage: UNK UKN, UNK
     Route: 048
  3. CARVEDILOL [Concomitant]
     Dosage: UNK UKN, UNK
     Route: 048
  4. SPIRONOLACTONE [Concomitant]
     Dosage: UNK UKN, UNK
     Route: 048
  5. ISOSORBIDE [Concomitant]
     Dosage: UNK UKN, UNK
     Route: 048

REACTIONS (2)
  - Aortic disorder [Unknown]
  - Hypertension [Recovering/Resolving]
